FAERS Safety Report 23996690 (Version 1)
Quarter: 2024Q2

REPORT INFORMATION
  Report Type: Spontaneous
  Country: US (occurrence: US)
  Receive Date: 20240620
  Receipt Date: 20240620
  Transmission Date: 20240716
  Serious: No
  Sender: FDA-Public Use
  Company Number: US-009507513-2405USA009020

PATIENT
  Age: 87 Year
  Sex: Female

DRUGS (2)
  1. KEYTRUDA [Suspect]
     Active Substance: PEMBROLIZUMAB
     Indication: Human epidermal growth factor receptor negative
     Dosage: 200 MILLIGRAM, Q3W (EVERY 21 DAYS)
  2. KEYTRUDA [Suspect]
     Active Substance: PEMBROLIZUMAB
     Indication: Oesophageal carcinoma

REACTIONS (1)
  - Off label use [Unknown]
